FAERS Safety Report 7226180-0 (Version None)
Quarter: 2011Q1

REPORT INFORMATION
  Report Type: 
  Country: None (occurrence: None)
  Receive Date: 20110114
  Receipt Date: 20110110
  Transmission Date: 20110831
  Serious: Yes (Other)
  Sender: FDA-Public Use
  Company Number: US-BIOGENIDEC-2011BI001172

PATIENT
  Age: 39 Year
  Sex: Male

DRUGS (1)
  1. AVONEX [Suspect]
     Indication: MULTIPLE SCLEROSIS
     Route: 030
     Dates: start: 20100622

REACTIONS (5)
  - FEELING COLD [None]
  - GRAND MAL CONVULSION [None]
  - TREMOR [None]
  - MOBILITY DECREASED [None]
  - TONGUE INJURY [None]
